FAERS Safety Report 5027605-1 (Version None)
Quarter: 2006Q2

REPORT INFORMATION
  Report Type: 
  Country: None (occurrence: None)
  Receive Date: 20060616
  Receipt Date: 20060606
  Transmission Date: 20061013
  Serious: Yes (Hospitalization)
  Sender: FDA-Public Use
  Company Number: FR-AVENTIS-200612034FR

PATIENT
  Age: 55 Year
  Sex: Male

DRUGS (3)
  1. LASILIX [Suspect]
     Indication: ACUTE PULMONARY OEDEMA
     Route: 048
     Dates: start: 20060411, end: 20060414
  2. TRIATEC [Suspect]
     Indication: DRUG USE FOR UNKNOWN INDICATION
     Route: 048
     Dates: end: 20060414
  3. ALDACTONE [Suspect]
     Indication: ACUTE PULMONARY OEDEMA
     Route: 048
     Dates: start: 20060411, end: 20060414

REACTIONS (2)
  - DRUG INTERACTION [None]
  - RENAL FAILURE ACUTE [None]
